FAERS Safety Report 8914911 (Version 3)
Quarter: 2013Q3

REPORT INFORMATION
  Report Type: Report from Study
  Country: FR (occurrence: FR)
  Receive Date: 20121116
  Receipt Date: 20130916
  Transmission Date: 20140515
  Serious: Yes (Death, Hospitalization)
  Sender: FDA-Public Use
  Company Number: FR-B.I. PHARMACEUTICALS,INC./RIDGEFIELD-2012-FF-01624FF

PATIENT
  Age: 60 Year
  Sex: Male
  Weight: 55 kg

DRUGS (5)
  1. BIBW 2992 (AFATINIB) [Suspect]
     Indication: LUNG ADENOCARCINOMA
     Dosage: 40 MG
     Route: 048
     Dates: start: 20120316, end: 20121106
  2. GEMCITABINE [Suspect]
     Indication: LUNG ADENOCARCINOMA
     Dosage: 1000MG/M2
     Route: 042
     Dates: start: 20120315, end: 20120705
  3. OXYCONTIN [Concomitant]
     Dosage: 10 MG
     Route: 048
     Dates: start: 20121022, end: 20121117
  4. OXYNORM [Concomitant]
     Dosage: 5 MG
     Route: 048
     Dates: start: 20121022, end: 20121117
  5. ARIXTRA [Concomitant]
     Dates: start: 20121109, end: 20121117

REACTIONS (3)
  - Malignant neoplasm progression [Fatal]
  - Pulmonary embolism [Fatal]
  - Abdominal pain [Unknown]
